FAERS Safety Report 8231039-6 (Version None)
Quarter: 2012Q1

REPORT INFORMATION
  Report Type: 
  Country: None (occurrence: None)
  Receive Date: 20120323
  Receipt Date: 20120315
  Transmission Date: 20120608
  Serious: Yes (Hospitalization)
  Sender: FDA-Public Use
  Company Number: US-BAYER-2011-098970

PATIENT
  Age: 42 Year
  Sex: Female

DRUGS (4)
  1. DROSPIRENONE AND ETHINYL ESTRADIOL [Suspect]
     Dosage: UNK
     Dates: start: 20080701, end: 20091001
  2. NITROFURANTOIN [Concomitant]
  3. ZOFRAN [Concomitant]
     Indication: NAUSEA
     Dosage: UNK
     Dates: start: 20101005
  4. YASMIN [Suspect]
     Dosage: UNK
     Dates: start: 20050201, end: 20080701

REACTIONS (3)
  - HEPATIC INFARCTION [None]
  - MESENTERIC VEIN THROMBOSIS [None]
  - INJURY [None]
